FAERS Safety Report 23746996 (Version 6)
Quarter: 2024Q4

REPORT INFORMATION
  Report Type: Report from Study
  Country: CO (occurrence: CO)
  Receive Date: 20240416
  Receipt Date: 20241202
  Transmission Date: 20250115
  Serious: Yes (Hospitalization, Other)
  Sender: NOVARTIS
  Company Number: CO-002147023-NVSC2024CO022044

PATIENT
  Age: 22 Year
  Sex: Female
  Weight: 50 kg

DRUGS (7)
  1. ELTROMBOPAG OLAMINE [Suspect]
     Active Substance: ELTROMBOPAG OLAMINE
     Indication: Immune thrombocytopenia
     Dosage: 100 MG, QD
     Route: 048
     Dates: start: 20180516
  2. ELTROMBOPAG OLAMINE [Suspect]
     Active Substance: ELTROMBOPAG OLAMINE
     Dosage: 50 MG, QD
     Route: 048
     Dates: start: 201805
  3. ELTROMBOPAG OLAMINE [Suspect]
     Active Substance: ELTROMBOPAG OLAMINE
     Dosage: 15 MG, QD
     Route: 048
  4. ELTROMBOPAG OLAMINE [Suspect]
     Active Substance: ELTROMBOPAG OLAMINE
     Dosage: 75 MG, QD
     Route: 048
     Dates: start: 20240308
  5. ELTROMBOPAG OLAMINE [Suspect]
     Active Substance: ELTROMBOPAG OLAMINE
     Dosage: UNK
     Route: 065
     Dates: start: 20240715
  6. ELTROMBOPAG OLAMINE [Suspect]
     Active Substance: ELTROMBOPAG OLAMINE
     Dosage: 50 MG, QD
     Route: 048
  7. ELTROMBOPAG OLAMINE [Suspect]
     Active Substance: ELTROMBOPAG OLAMINE
     Dosage: 100 MG, QD
     Route: 065

REACTIONS (25)
  - Thrombosis [Recovered/Resolved]
  - Eye disorder [Recovered/Resolved]
  - Headache [Recovered/Resolved]
  - Cerebrovascular accident [Recovered/Resolved]
  - Thrombocytosis [Unknown]
  - Off label use [Unknown]
  - Petechiae [Unknown]
  - Contusion [Unknown]
  - Epistaxis [Unknown]
  - Fatigue [Unknown]
  - Gingival bleeding [Unknown]
  - Pain [Unknown]
  - Vomiting [Unknown]
  - Optic neuritis [Unknown]
  - Visual impairment [Unknown]
  - Ovarian cyst ruptured [Unknown]
  - Haemorrhagic ovarian cyst [Unknown]
  - Migraine [Unknown]
  - Ear infection [Unknown]
  - Prescribed overdose [Unknown]
  - Platelet count decreased [Unknown]
  - Ovarian cyst [Unknown]
  - Drug ineffective [Unknown]
  - Headache [Unknown]
  - Eye disorder [Recovering/Resolving]

NARRATIVE: CASE EVENT DATE: 20240201
